FAERS Safety Report 14700058 (Version 1)
Quarter: 2018Q1

REPORT INFORMATION
  Report Type: Spontaneous
  Country: US (occurrence: US)
  Receive Date: 20180330
  Receipt Date: 20180330
  Transmission Date: 20180509
  Serious: No
  Sender: FDA-Public Use
  Company Number: US-ZYDUS-019189

PATIENT
  Age: 7 Year
  Sex: Female

DRUGS (3)
  1. TYLENOL [Concomitant]
     Active Substance: ACETAMINOPHEN
     Indication: INFLUENZA
     Dosage: BY MOUTH EVERY 4 HOURS ALTERNATING WITH MOTRIN FOR INFLUENZA
     Route: 048
  2. OSELTAMIVIR/OSELTAMIVIR PHOSPHATE [Suspect]
     Active Substance: OSELTAMIVIR PHOSPHATE
     Indication: INFLUENZA
     Dosage: DRUG STRENGTH: 06 MG/ML
     Route: 048
     Dates: start: 20180225, end: 20180225
  3. IBUPROFEN. [Concomitant]
     Active Substance: IBUPROFEN
     Indication: INFLUENZA
     Dosage: ONE TABLET BY MOUTH EVERY 4 HOURS ALTERNATING WITH TYLENOL FOR INFLUENZA
     Route: 048

REACTIONS (1)
  - Lip swelling [Not Recovered/Not Resolved]

NARRATIVE: CASE EVENT DATE: 20180225
